FAERS Safety Report 6359189-X (Version None)
Quarter: 2009Q3

REPORT INFORMATION
  Report Type: 
  Country: None (occurrence: None)
  Receive Date: 20090917
  Receipt Date: 20090910
  Transmission Date: 20100115
  Serious: Yes (Other)
  Sender: FDA-Public Use
  Company Number: FR-JNJFOC-20090903575

PATIENT
  Sex: Female

DRUGS (4)
  1. REMINYL LP [Suspect]
     Indication: DEMENTIA ALZHEIMER'S TYPE
     Route: 048
  2. FLUINDIONE [Concomitant]
     Route: 065
  3. PROTON PUMP INHIBITOR [Concomitant]
     Route: 065
  4. UNKNOWN MEDICATION [Concomitant]
     Route: 065

REACTIONS (1)
  - INTERNATIONAL NORMALISED RATIO INCREASED [None]
